FAERS Safety Report 16572464 (Version 2)
Quarter: 2022Q1

REPORT INFORMATION
  Report Type: Report from Study
  Country: US (occurrence: US)
  Receive Date: 20190715
  Receipt Date: 20220214
  Transmission Date: 20220423
  Serious: Yes (Other)
  Sender: FDA-Public Use
  Company Number: US-JNJFOC-20190707011

PATIENT

DRUGS (1)
  1. GUSELKUMAB [Suspect]
     Active Substance: GUSELKUMAB
     Indication: Product used for unknown indication
     Route: 058

REACTIONS (13)
  - Fungal infection [Unknown]
  - Rash [Unknown]
  - Dyspnoea [Unknown]
  - Lymphadenopathy [Unknown]
  - Furuncle [Unknown]
  - Pain of skin [Unknown]
  - Fungal infection [Unknown]
  - Dyspnoea [Unknown]
  - Productive cough [Unknown]
  - Arthralgia [Unknown]
  - Injection site pain [Unknown]
  - Diarrhoea [Unknown]
  - Headache [Unknown]
